FAERS Safety Report 6579391-1 (Version None)
Quarter: 2010Q1

REPORT INFORMATION
  Report Type: 
  Country: None (occurrence: None)
  Receive Date: 20100209
  Receipt Date: 20100209
  Transmission Date: 20100710
  Serious: Yes (Hospitalization)
  Sender: FDA-Public Use
  Company Number: None

PATIENT
  Sex: Male
  Weight: 231.1 kg

DRUGS (5)
  1. VINCRISTINE SULFATE [Suspect]
     Dosage: 5.12 MG
  2. CYCLOPHOSPHAMIDE [Suspect]
     Dosage: 2400 MG
  3. DOXORUBICIN HCL [Suspect]
     Dosage: 96 MG
  4. PREDNISONE [Suspect]
     Dosage: 2100 MG
  5. RITUXIMAB (MOAB C2B8 ANTI CD20, CHIMERIC) [Suspect]
     Dosage: 1200 MG

REACTIONS (6)
  - ABDOMINAL PAIN [None]
  - EYE ROLLING [None]
  - HAEMOPTYSIS [None]
  - INSOMNIA [None]
  - LOSS OF CONSCIOUSNESS [None]
  - MEMORY IMPAIRMENT [None]
